FAERS Safety Report 5146256-1 (Version None)
Quarter: 2006Q4

REPORT INFORMATION
  Report Type: 
  Country: None (occurrence: None)
  Receive Date: 20061102
  Receipt Date: 20060920
  Transmission Date: 20070319
  Serious: Yes (Hospitalization)
  Sender: FDA-Public Use
  Company Number: WAES 0608USA00939

PATIENT
  Age: 64 Year
  Sex: Male

DRUGS (1)
  1. INDOCIN [Suspect]
     Dosage: 50 MG/DAILY RECT
     Route: 054

REACTIONS (6)
  - DUODENAL ULCER [None]
  - GASTRIC MUCOSAL LESION [None]
  - HAEMATEMESIS [None]
  - HIATUS HERNIA [None]
  - OESOPHAGITIS [None]
  - UPPER GASTROINTESTINAL HAEMORRHAGE [None]
